FAERS Safety Report 4646858-2 (Version None)
Quarter: 2005Q2

REPORT INFORMATION
  Report Type: 
  Country: None (occurrence: None)
  Receive Date: 20050331
  Receipt Date: 20050119
  Transmission Date: 20051028
  Serious: No
  Sender: FDA-Public Use
  Company Number: 05P-163-0287265-00

PATIENT
  Age: 49 Year
  Sex: Female

DRUGS (6)
  1. HUMIRA [Suspect]
     Indication: RHEUMATOID ARTHRITIS
     Dosage: 40 MG, 1 IN 2 WK, SUBCUTANEOUS
     Route: 058
     Dates: start: 20041222
  2. METHOTREXATE [Concomitant]
  3. FOLIC ACID [Concomitant]
  4. BISELECT [Concomitant]
  5. DILTIAZEM HYDROCHLORIDE [Concomitant]
  6. QUINAPRIL HCL [Concomitant]

REACTIONS (1)
  - DYSPHONIA [None]
